FAERS Safety Report 9918196 (Version 1)
Quarter: 2014Q1

REPORT INFORMATION
  Report Type: Spontaneous
  Country: TR (occurrence: TR)
  Receive Date: 20140223
  Receipt Date: 20140223
  Transmission Date: 20141002
  Serious: Yes (Hospitalization)
  Sender: FDA-Public Use
  Company Number: TR-MYLANLABS-2014S1003206

PATIENT
  Age: 26 Year
  Sex: Female

DRUGS (2)
  1. FENTANYL [Suspect]
     Indication: DRUG ABUSE
     Dosage: 4 X 10MG PATCHES, 100 MICRO/H [SIC] RELEASE RATE
     Route: 062
  2. FENTANYL [Suspect]
     Indication: OFF LABEL USE
     Dosage: 4 X 10MG PATCHES, 100 MICRO/H [SIC] RELEASE RATE
     Route: 062

REACTIONS (4)
  - Depressed level of consciousness [Recovered/Resolved]
  - Coma [Recovered/Resolved]
  - Respiratory arrest [Recovered/Resolved]
  - Drug abuse [Recovered/Resolved]
